FAERS Safety Report 24566098 (Version 1)
Quarter: 2024Q4

REPORT INFORMATION
  Report Type: Spontaneous
  Country: CA (occurrence: CA)
  Receive Date: 20241030
  Receipt Date: 20241030
  Transmission Date: 20250115
  Serious: Yes (Hospitalization)
  Sender: BAYER HEALTHCARE PHARMACEUTICALS INC.
  Company Number: CA-BAYER-2024A155282

PATIENT
  Age: 42 Year
  Sex: Female

DRUGS (1)
  1. GADOBUTROL [Suspect]
     Active Substance: GADOBUTROL
     Indication: Scan with contrast
     Dosage: 10 ML,SOLUTION INTRAVENOUS
     Route: 042

REACTIONS (3)
  - Urticaria [Unknown]
  - Erythema [Unknown]
  - Swelling [None]
